FAERS Safety Report 6858124-5 (Version None)
Quarter: 2010Q3

REPORT INFORMATION
  Report Type: 
  Country: None (occurrence: None)
  Receive Date: 20100719
  Receipt Date: 20080201
  Transmission Date: 20110219
  Serious: No
  Sender: FDA-Public Use
  Company Number: US-PFIZER INC-2008012225

PATIENT
  Sex: Female
  Weight: 63.636 kg

DRUGS (3)
  1. CHANTIX [Suspect]
     Indication: SMOKING CESSATION THERAPY
     Dates: start: 20080128
  2. ZYRTEC [Concomitant]
     Indication: HYPERSENSITIVITY
  3. PROTONIX [Concomitant]
     Indication: GASTROOESOPHAGEAL REFLUX DISEASE

REACTIONS (4)
  - DYSPNOEA [None]
  - INCORRECT DOSE ADMINISTERED [None]
  - INSOMNIA [None]
  - NAUSEA [None]
